FAERS Safety Report 11779090 (Version 1)
Quarter: 2015Q4

REPORT INFORMATION
  Report Type: Spontaneous
  Country: US (occurrence: US)
  Receive Date: 20151125
  Receipt Date: 20151125
  Transmission Date: 20160304
  Serious: Yes (Hospitalization, Other)
  Sender: FDA-Public Use
  Company Number: US-ELI_LILLY_AND_COMPANY-US201511005514

PATIENT
  Age: 43 Year
  Sex: Male
  Weight: 94.33 kg

DRUGS (13)
  1. ADCIRCA [Suspect]
     Active Substance: TADALAFIL
     Indication: PULMONARY ARTERIAL HYPERTENSION
     Dosage: 40 MG, QD
     Route: 048
     Dates: start: 201107
  2. OPSUMIT [Concomitant]
     Active Substance: MACITENTAN
     Indication: PULMONARY ARTERIAL HYPERTENSION
     Dosage: 10 MG, QD
     Route: 048
     Dates: start: 20141105
  3. AZITHROMIN [Concomitant]
     Indication: SINUSITIS
     Dosage: UNK, UNKNOWN
     Route: 065
     Dates: start: 20150304, end: 20150308
  4. TYVASO [Suspect]
     Active Substance: TREPROSTINIL
     Indication: PULMONARY ARTERIAL HYPERTENSION
     Dosage: 12 DF, QID
     Route: 055
     Dates: start: 201012
  5. PRILOSEC [Concomitant]
     Active Substance: OMEPRAZOLE MAGNESIUM
     Indication: PULMONARY ARTERIAL HYPERTENSION
     Dosage: 20 MG, QD
     Route: 048
     Dates: start: 201012
  6. PROCARDIA [Concomitant]
     Active Substance: NIFEDIPINE
     Indication: PULMONARY ARTERIAL HYPERTENSION
     Dosage: 60 MG, QD
     Route: 048
     Dates: start: 20070920
  7. OMEGA-3 FATTY ACIDS W/VITAMIN E NOS [Concomitant]
     Indication: ROUTINE HEALTH MAINTENANCE
     Dosage: UNK
     Dates: start: 201410
  8. LIDOCAINE. [Concomitant]
     Active Substance: LIDOCAINE
     Indication: LOCAL ANAESTHESIA
     Dosage: UNK, UNKNOWN
     Route: 065
     Dates: start: 20150320, end: 20150320
  9. MELATONIN [Concomitant]
     Active Substance: MELATONIN
     Indication: SLEEP APNOEA SYNDROME
     Dosage: UNK, UNKNOWN
     Route: 065
     Dates: start: 20150210
  10. LASIX [Concomitant]
     Active Substance: FUROSEMIDE
     Indication: PULMONARY ARTERIAL HYPERTENSION
     Dosage: 20 MG, QD
     Route: 048
     Dates: start: 20140227, end: 20150407
  11. DEXTROSE IN WATER [Concomitant]
     Indication: VASCULAR OPERATION
     Dosage: UNK, UNKNOWN
     Route: 065
     Dates: start: 20150320, end: 20150320
  12. LOVENOX [Concomitant]
     Active Substance: ENOXAPARIN SODIUM
     Indication: PULMONARY ARTERIAL HYPERTENSION
     Dosage: UNK, UNKNOWN
     Route: 065
     Dates: start: 20150325, end: 20150325
  13. COUMADIN [Concomitant]
     Active Substance: WARFARIN SODIUM
     Indication: ANTICOAGULANT THERAPY
     Dosage: UNK, UNKNOWN
     Route: 065
     Dates: start: 20150325

REACTIONS (12)
  - Hypoxia [Unknown]
  - Irregular breathing [Unknown]
  - Chest pain [Unknown]
  - Circulatory collapse [Unknown]
  - Cardiac flutter [Unknown]
  - Syncope [Recovering/Resolving]
  - Fall [Unknown]
  - Loss of consciousness [Unknown]
  - Seizure [Unknown]
  - Extrasystoles [Unknown]
  - Dyspnoea [Unknown]
  - Musculoskeletal chest pain [Unknown]

NARRATIVE: CASE EVENT DATE: 2013
